FAERS Safety Report 10035833 (Version 1)
Quarter: 2014Q1

REPORT INFORMATION
  Report Type: Spontaneous
  Country: US (occurrence: US)
  Receive Date: 20140325
  Receipt Date: 20140325
  Transmission Date: 20141002
  Serious: No
  Sender: FDA-Public Use
  Company Number: US-BAYER-2014-037577

PATIENT
  Age: 52 Year
  Sex: Male
  Weight: 85.26 kg

DRUGS (1)
  1. ALEVE CAPLET [Suspect]
     Indication: BACK PAIN
     Route: 048

REACTIONS (4)
  - Aphthous stomatitis [Not Recovered/Not Resolved]
  - Incorrect drug administration duration [None]
  - Extra dose administered [None]
  - Product contamination physical [None]
